FAERS Safety Report 25232409 (Version 1)
Quarter: 2025Q2

REPORT INFORMATION
  Report Type: Spontaneous
  Country: FR (occurrence: FR)
  Receive Date: 20250423
  Receipt Date: 20250423
  Transmission Date: 20250717
  Serious: Yes (Hospitalization)
  Sender: JAZZ
  Company Number: None

PATIENT

DRUGS (4)
  1. CANNABIDIOL [Interacting]
     Active Substance: CANNABIDIOL
     Indication: Epilepsy
     Dosage: 120 MILLIGRAM, BID
     Route: 048
     Dates: start: 20241128, end: 20250327
  2. VALPROATE SODIUM [Suspect]
     Active Substance: VALPROATE SODIUM
     Indication: Epilepsy
     Route: 048
     Dates: start: 20240405, end: 20250328
  3. LAMICTAL [Suspect]
     Active Substance: LAMOTRIGINE
     Indication: Epilepsy
     Dosage: 75 MILLIGRAM, CONT
     Route: 048
     Dates: start: 20240531
  4. CLOBAZAM [Suspect]
     Active Substance: CLOBAZAM
     Indication: Epilepsy
     Dosage: 2 MILLIGRAM, CONT
     Route: 048
     Dates: start: 20250304, end: 20250324

REACTIONS (4)
  - Encephalopathy [Recovered/Resolved]
  - Pancytopenia [Recovering/Resolving]
  - Drug interaction [Recovering/Resolving]
  - Overdose [Recovering/Resolving]

NARRATIVE: CASE EVENT DATE: 20250304
